FAERS Safety Report 25974010 (Version 1)
Quarter: 2025Q4

REPORT INFORMATION
  Report Type: Spontaneous
  Country: US (occurrence: US)
  Receive Date: 20251029
  Receipt Date: 20251029
  Transmission Date: 20260117
  Serious: No
  Sender: ROCHE
  Company Number: US-ROCHE-10000417610

PATIENT
  Age: 69 Year
  Sex: Female
  Weight: 95.25 kg

DRUGS (6)
  1. XOLAIR [Suspect]
     Active Substance: OMALIZUMAB
     Indication: Urticaria
     Dosage: TWO 150 MG/ML SYRINGES
     Route: 058
     Dates: start: 2022
  2. XOLAIR [Suspect]
     Active Substance: OMALIZUMAB
  3. ALBUTEROL [Concomitant]
     Active Substance: ALBUTEROL
  4. ADVAIR DISKU AEP [Concomitant]
     Dosage: 250-50 MC
  5. ROSUVASTATIN [Concomitant]
     Active Substance: ROSUVASTATIN
  6. PREDNISONE [Concomitant]
     Active Substance: PREDNISONE
     Dosage: CORTISONE CREAM

REACTIONS (2)
  - Urticaria [Not Recovered/Not Resolved]
  - Product quality issue [Unknown]

NARRATIVE: CASE EVENT DATE: 20251001
